FAERS Safety Report 25473111 (Version 1)
Quarter: 2025Q2

REPORT INFORMATION
  Report Type: Report from Study
  Country: US (occurrence: US)
  Receive Date: 20250624
  Receipt Date: 20250624
  Transmission Date: 20250717
  Serious: Yes (Life-Threatening, Other)
  Sender: ABBVIE
  Company Number: US-ABBVIE-6340643

PATIENT
  Age: 40 Year
  Sex: Female

DRUGS (1)
  1. HUMIRA [Suspect]
     Active Substance: ADALIMUMAB
     Indication: Product used for unknown indication
     Route: 058
     Dates: start: 20180501, end: 20210317

REACTIONS (15)
  - Resuscitation [Not Recovered/Not Resolved]
  - Psoriasis [Not Recovered/Not Resolved]
  - Hypersensitivity [Not Recovered/Not Resolved]
  - COVID-19 [Not Recovered/Not Resolved]
  - Pyrexia [Not Recovered/Not Resolved]
  - Tibia fracture [Not Recovered/Not Resolved]
  - Insomnia [Not Recovered/Not Resolved]
  - Fall [Not Recovered/Not Resolved]
  - Dysphemia [Not Recovered/Not Resolved]
  - Brain injury [Not Recovered/Not Resolved]
  - Back pain [Not Recovered/Not Resolved]
  - Arthralgia [Not Recovered/Not Resolved]
  - Headache [Not Recovered/Not Resolved]
  - Memory impairment [Not Recovered/Not Resolved]
  - Patella fracture [Not Recovered/Not Resolved]

NARRATIVE: CASE EVENT DATE: 20200101
